FAERS Safety Report 8653110 (Version 5)
Quarter: 2012Q4

REPORT INFORMATION
  Report Type: 
  Country: US (occurrence: US)
  Receive Date: 20120706
  Receipt Date: 20121019
  Transmission Date: 20130627
  Serious: Yes (Hospitalization)
  Sender: FDA-Public Use
  Company Number: US-PURDUE-USA-2012-0089340

PATIENT
  Age: 63 Year
  Sex: Female
  Weight: 63.31 kg

DRUGS (8)
  1. NALOXONE HYDROCHLORIDE\OXYCODONE HYDROCHLORIDE [Suspect]
     Indication: BACK PAIN
     Dosage: 20 mg, bid
     Route: 048
     Dates: start: 20120508, end: 20120623
  2. OXYCODONE HYDROCHLORIDE IR [Suspect]
     Dosage: 5 mg, prn
     Route: 048
     Dates: start: 20120419, end: 20120623
  3. TRIAMTERENE AND HYDROCHLOROTHIAZID [Concomitant]
     Indication: HYPERTENSION
     Dosage: 37.5 mg, daily
     Route: 048
     Dates: start: 2000
  4. AMLODIPINE [Concomitant]
     Indication: HYPERTENSION
     Dosage: 5 mg, daily
     Route: 048
     Dates: start: 20120105
  5. ESTRADIOL [Concomitant]
     Indication: HORMONE REPLACEMENT THERAPY
     Dosage: 1 mg, daily
     Route: 048
     Dates: start: 20080219
  6. SYNTHROID [Concomitant]
     Indication: HYPOTHYROIDISM
     Dosage: 88 mcg, daily
     Route: 048
     Dates: start: 2004
  7. EXCEDRIN                           /00110301/ [Concomitant]
     Indication: HEADACHE
     Dosage: 250 mg, prn
     Route: 048
     Dates: start: 1970
  8. VITAMIN D /00107901/ [Concomitant]
     Indication: ROUTINE HEALTH MAINTENANCE
     Dosage: 1000 mg, daily
     Route: 048
     Dates: start: 2008

REACTIONS (1)
  - Rectal perforation [Recovered/Resolved]
